FAERS Safety Report 12490863 (Version 1)
Quarter: 2016Q2

REPORT INFORMATION
  Report Type: Spontaneous
  Country: ES (occurrence: ES)
  Receive Date: 20160623
  Receipt Date: 20160623
  Transmission Date: 20160815
  Serious: Yes (Other)
  Sender: FDA-Public Use
  Company Number: ES-ALVOGEN-2016-ALVOGEN-025094

PATIENT
  Age: 53 Year
  Sex: Male

DRUGS (2)
  1. TEMOZOLOMIDE. [Suspect]
     Active Substance: TEMOZOLOMIDE
     Indication: OLIGODENDROGLIOMA
     Dosage: TMZ; 6 CYCLES AT A DOSE OF 200 MG/M2 /D FOR 5 CONSECUTIVE DAYS IN EACH 28-DAY CYCLE.
  2. TEMOZOLOMIDE. [Suspect]
     Active Substance: TEMOZOLOMIDE
     Indication: OLIGODENDROGLIOMA

REACTIONS (2)
  - Tumour pseudoprogression [Unknown]
  - False positive investigation result [Unknown]
